FAERS Safety Report 7658815-2 (Version None)
Quarter: 2011Q3

REPORT INFORMATION
  Report Type: 
  Country: None (occurrence: None)
  Receive Date: 20110805
  Receipt Date: 20110722
  Transmission Date: 20111222
  Serious: No
  Sender: FDA-Public Use
  Company Number: US-B.I. PHARMACEUTICALS,INC./RIDGEFIELD-2011-BP-16038BP

PATIENT
  Age: 68 Year
  Sex: Male

DRUGS (8)
  1. OMEPRAZOLE [Concomitant]
     Dosage: 40 MG
  2. TAMSULOSIN HCL [Concomitant]
     Dosage: 0.4 MG
  3. AMIODARONE HCL [Concomitant]
     Dosage: 200 MG
  4. PRADAXA [Suspect]
     Indication: BLOOD CHOLESTEROL
  5. LEVOXYL [Concomitant]
     Dosage: 75 MG
  6. SIMVASTATIN [Concomitant]
     Indication: BLOOD CHOLESTEROL ABNORMAL
     Dosage: 20 MG
  7. PRADAXA [Suspect]
     Indication: ATRIAL FIBRILLATION
     Dosage: 300 MG
     Route: 048
     Dates: start: 20110512, end: 20110513
  8. FLOMAX [Concomitant]
     Indication: MICTURITION DISORDER

REACTIONS (1)
  - CHEST PAIN [None]
